FAERS Safety Report 20688516 (Version 6)
Quarter: 2022Q2

REPORT INFORMATION
  Report Type: Other
  Country: CO (occurrence: CO)
  Receive Date: 20220408
  Receipt Date: 20220617
  Transmission Date: 20220720
  Serious: Yes (Hospitalization)
  Sender: FDA-Public Use
  Company Number: CO-002147023-NVSC2022CO073870

PATIENT
  Age: 16 Year
  Sex: Male

DRUGS (7)
  1. XOLAIR [Suspect]
     Active Substance: OMALIZUMAB
     Indication: Asthma
     Dosage: 450 MG, (EVERY 15 DAYS)
     Route: 058
  2. XOLAIR [Suspect]
     Active Substance: OMALIZUMAB
     Dosage: 450 MG, BIW
     Route: 058
  3. XOLAIR [Suspect]
     Active Substance: OMALIZUMAB
     Dosage: 900 MG, QMO
     Route: 058
  4. XOLAIR [Suspect]
     Active Substance: OMALIZUMAB
     Dosage: 450 MG EVERY 15 DAYS
     Route: 058
  5. DESLORATADINE [Concomitant]
     Active Substance: DESLORATADINE
     Indication: Food allergy
     Dosage: UNK, AS REQUIRED
     Route: 048
     Dates: start: 2020
  6. SYMBICORT [Concomitant]
     Active Substance: BUDESONIDE\FORMOTEROL FUMARATE DIHYDRATE
     Indication: Asthma
     Dosage: UNK, 2 PUFF EVERY 12 HOURS
     Route: 048
     Dates: start: 2021
  7. LIDOCAINE [Concomitant]
     Active Substance: LIDOCAINE
     Indication: Asthma
     Dosage: UNK, AS REQUIRED
     Route: 061
     Dates: start: 2021

REACTIONS (10)
  - Illness [Unknown]
  - Discomfort [Not Recovered/Not Resolved]
  - Abdominal pain upper [Not Recovered/Not Resolved]
  - Pharyngitis [Recovered/Resolved]
  - Decreased appetite [Unknown]
  - Erythema [Unknown]
  - Gastric disorder [Unknown]
  - Drug intolerance [Unknown]
  - Asthenia [Not Recovered/Not Resolved]
  - Incorrect dose administered [Unknown]

NARRATIVE: CASE EVENT DATE: 20220301
